FAERS Safety Report 17611451 (Version 1)
Quarter: 2020Q2

REPORT INFORMATION
  Report Type: Spontaneous
  Country: JP (occurrence: JP)
  Receive Date: 20200401
  Receipt Date: 20200401
  Transmission Date: 20200713
  Serious: Yes (Hospitalization)
  Sender: FDA-Public Use
  Company Number: NVSC2020JP088593

PATIENT
  Age: 46 Year
  Sex: Female

DRUGS (2)
  1. OXALIPLATIN. [Suspect]
     Active Substance: OXALIPLATIN
     Indication: RECTAL CANCER
     Dosage: 200 MG, DAY 0
     Route: 065
  2. CAPECITABINE. [Suspect]
     Active Substance: CAPECITABINE
     Indication: RECTAL CANCER
     Dosage: 1500 MG, BID, DAY 0 EVENING?DAY 14 MORNING
     Route: 065

REACTIONS (6)
  - Dyspnoea [Unknown]
  - Asthma [Unknown]
  - Nausea [Unknown]
  - Thrombocytopenia [Unknown]
  - Drug-induced liver injury [Unknown]
  - Anaphylactic reaction [Unknown]
